FAERS Safety Report 6645437-5 (Version None)
Quarter: 2010Q1

REPORT INFORMATION
  Report Type: 
  Country: None (occurrence: None)
  Receive Date: 20100322
  Receipt Date: 20100318
  Transmission Date: 20100710
  Serious: Yes (Life-Threatening)
  Sender: FDA-Public Use
  Company Number: BE-ASTRAZENECA-2010SE11846

PATIENT
  Age: 74 Year
  Sex: Female

DRUGS (2)
  1. ZESTORETIC [Suspect]
     Indication: HYPERTENSION
     Route: 048
  2. BISOPROLOL [Concomitant]
     Indication: HYPERTENSION

REACTIONS (2)
  - ANGIOEDEMA [None]
  - COMA [None]
